FAERS Safety Report 7072141-4 (Version None)
Quarter: 2010Q4

REPORT INFORMATION
  Report Type: 
  Country: None (occurrence: None)
  Receive Date: 20101029
  Receipt Date: 20091208
  Transmission Date: 20110411
  Serious: No
  Sender: FDA-Public Use
  Company Number: A0834127A

PATIENT
  Age: 67 Year
  Sex: Male

DRUGS (17)
  1. ADVAIR DISKUS 100/50 [Suspect]
     Dosage: 1PUFF TWICE PER DAY
     Route: 055
     Dates: start: 20091101
  2. ALLOPURINOL [Concomitant]
  3. ATENOLOL [Concomitant]
  4. CARBIDOPA AND LEVODOPA [Concomitant]
  5. COLCHICINE [Concomitant]
     Indication: GOUT
  6. FLOMAX [Concomitant]
  7. LISINOPRIL [Concomitant]
  8. NITROGLYCERIN [Concomitant]
     Indication: CHEST PAIN
  9. PLAVIX [Concomitant]
  10. ASPIRIN [Concomitant]
  11. CENTRUM SILVER [Concomitant]
  12. CO Q 10 [Concomitant]
     Indication: PROPHYLACTIC CHEMOTHERAPY
  13. GARLIQUE [Concomitant]
  14. LOVAZA [Concomitant]
  15. OSTEO-BI-FLEX [Concomitant]
  16. FIBERCON [Concomitant]
  17. VITAMIN D [Concomitant]
     Indication: PROPHYLACTIC CHEMOTHERAPY

REACTIONS (2)
  - ORAL CANDIDIASIS [None]
  - ORAL PAIN [None]
